FAERS Safety Report 5274247-9 (Version None)
Quarter: 2007Q1

REPORT INFORMATION
  Report Type: 
  Country: None (occurrence: None)
  Receive Date: 20070323
  Receipt Date: 20070312
  Transmission Date: 20070707
  Serious: Yes (Death, Other)
  Sender: FDA-Public Use
  Company Number: GB-JNJFOC-20060902309

PATIENT
  Sex: Female
  Weight: 62 kg

DRUGS (18)
  1. REMICADE [Suspect]
     Indication: RHEUMATOID ARTHRITIS
     Route: 042
  2. METHOTREXATE [Concomitant]
     Route: 065
  3. AMITRIPTYLINE HCL [Concomitant]
     Route: 065
  4. BECOTIDE [Concomitant]
     Route: 065
  5. CALCICHEW [Concomitant]
     Route: 065
  6. CELECOXIB [Concomitant]
     Route: 065
  7. CO-CODAMOL [Concomitant]
     Route: 065
  8. FOLIC ACID [Concomitant]
     Route: 065
  9. GAVISCON [Concomitant]
     Route: 065
  10. LACTULOSE [Concomitant]
     Route: 065
  11. SALBUTAMOL [Concomitant]
     Route: 065
  12. SALBUTAMOL [Concomitant]
  13. SIMVASTATIN [Concomitant]
  14. NITROFURANTOIN [Concomitant]
  15. OMEPRAZOLE [Concomitant]
  16. DEXAMETHASONE [Concomitant]
  17. RISEDRONATE SODIUM [Concomitant]
  18. GLICLAZIDE [Concomitant]

REACTIONS (4)
  - INTERSTITIAL LUNG DISEASE [None]
  - PNEUMONIA [None]
  - ULCER [None]
  - WOUND [None]
